APPROVED DRUG PRODUCT: CHLORPROMAZINE HYDROCHLORIDE
Active Ingredient: CHLORPROMAZINE HYDROCHLORIDE
Strength: 25MG/ML
Dosage Form/Route: INJECTABLE;INJECTION
Application: A218229 | Product #001 | TE Code: AP
Applicant: DEVA HOLDING ANONIM SIRKETI
Approved: Sep 24, 2024 | RLD: No | RS: No | Type: RX